FAERS Safety Report 15579675 (Version 1)
Quarter: 2018Q4

REPORT INFORMATION
  Report Type: Spontaneous
  Country: US (occurrence: US)
  Receive Date: 20181102
  Receipt Date: 20181102
  Transmission Date: 20190205
  Serious: No
  Sender: FDA-Public Use
  Company Number: US-ASTRAZENECA-2018SF30554

PATIENT
  Sex: Female

DRUGS (1)
  1. BYETTA [Suspect]
     Active Substance: EXENATIDE
     Indication: DIABETES MELLITUS
     Dosage: 250 MCG / 1.2 ML PEN 5 UG TWO TIMES A DAY
     Route: 058
     Dates: start: 201808

REACTIONS (3)
  - Wrong technique in device usage process [Unknown]
  - Blood glucose increased [Unknown]
  - Product storage error [Unknown]
